FAERS Safety Report 4320690-1 (Version None)
Quarter: 2004Q1

REPORT INFORMATION
  Report Type: 
  Country: None (occurrence: None)
  Receive Date: 20040318
  Receipt Date: 20040304
  Transmission Date: 20041129
  Serious: Yes (Life-Threatening)
  Sender: FDA-Public Use
  Company Number: RENA-10922

PATIENT
  Age: 50 Year
  Sex: Male

DRUGS (3)
  1. PHOSBLOCK - 250 MG TABLET [Suspect]
     Indication: HYPERPHOSPHATAEMIA
     Dosage: 6 G QD PO
     Route: 048
     Dates: start: 20030713, end: 20040120
  2. PRECIPITATED CALCIUM CARBONATE [Concomitant]
  3. NICERITROL [Concomitant]

REACTIONS (7)
  - ABDOMINAL PAIN [None]
  - CHEST PAIN [None]
  - CONSTIPATION [None]
  - ELECTROCARDIOGRAM ST SEGMENT DEPRESSION [None]
  - ILEAL PERFORATION [None]
  - JEJUNAL PERFORATION [None]
  - MESENTERIC VASCULAR INSUFFICIENCY [None]
